FAERS Safety Report 13333158 (Version 3)
Quarter: 2017Q2

REPORT INFORMATION
  Report Type: Spontaneous
  Country: US (occurrence: US)
  Receive Date: 20170314
  Receipt Date: 20170421
  Transmission Date: 20170830
  Serious: No
  Sender: FDA-Public Use
  Company Number: US-GLAXOSMITHKLINE-US2017034646

PATIENT
  Sex: Female
  Weight: 106.58 kg

DRUGS (3)
  1. MAGNESIUM [Concomitant]
     Active Substance: MAGNESIUM
     Dosage: 2 DF, BID
  2. CARVEDILOL TABLET [Concomitant]
     Active Substance: CARVEDILOL
     Dosage: 6.25 MG, BID
  3. VENTOLIN HFA [Suspect]
     Active Substance: ALBUTEROL SULFATE
     Indication: PRODUCT USED FOR UNKNOWN INDICATION
     Dosage: 2 PUFF(S), EVERY SIX HOURS
     Route: 055

REACTIONS (10)
  - Device use error [Unknown]
  - Wrong technique in product usage process [Unknown]
  - Product quality issue [Unknown]
  - Myalgia [Unknown]
  - Drug dose omission [Unknown]
  - Joint stiffness [Unknown]
  - Arthralgia [Unknown]
  - Joint swelling [Unknown]
  - Muscle spasms [Unknown]
  - Bursitis [Unknown]
